FAERS Safety Report 10005009 (Version 1)
Quarter: 2014Q1

REPORT INFORMATION
  Report Type: Spontaneous
  Country: DE (occurrence: DE)
  Receive Date: 20140312
  Receipt Date: 20140312
  Transmission Date: 20141002
  Serious: Yes (Congenital Anomaly, Other)
  Sender: FDA-Public Use
  Company Number: DE-MYLANLABS-2014S1004721

PATIENT
  Age: 1 Day
  Sex: Male
  Weight: 2.22 kg

DRUGS (1)
  1. CITALOPRAM [Suspect]
     Indication: PANIC DISORDER
     Dosage: 40 [MG/D ]
     Route: 064
     Dates: start: 20111002, end: 20120629

REACTIONS (5)
  - Small for dates baby [Recovered/Resolved]
  - Micropenis [Not Recovered/Not Resolved]
  - Hypospadias [Not Recovered/Not Resolved]
  - Cryptorchism [Recovering/Resolving]
  - Exposure during pregnancy [Recovered/Resolved]
